FAERS Safety Report 20067834 (Version 2)
Quarter: 2021Q4

REPORT INFORMATION
  Report Type: Spontaneous
  Country: US (occurrence: None)
  Receive Date: 20211115
  Receipt Date: 20211122
  Transmission Date: 20220303
  Serious: Yes (Other)
  Sender: FDA-Public Use
  Company Number: 2021A802391

PATIENT
  Sex: Female
  Weight: 90.7 kg

DRUGS (1)
  1. BYDUREON BCISE [Suspect]
     Active Substance: EXENATIDE
     Indication: Type 2 diabetes mellitus
     Route: 058

REACTIONS (5)
  - Carpal tunnel syndrome [Not Recovered/Not Resolved]
  - Body height decreased [Unknown]
  - Reading disorder [Unknown]
  - Device malfunction [Unknown]
  - Wrong technique in device usage process [Unknown]
